FAERS Safety Report 17968203 (Version 3)
Quarter: 2020Q3

REPORT INFORMATION
  Report Type: Spontaneous
  Country: FR (occurrence: FR)
  Receive Date: 20200701
  Receipt Date: 20200807
  Transmission Date: 20201103
  Serious: Yes (Hospitalization, Other)
  Sender: FDA-Public Use
  Company Number: FR-PFIZER INC-2020252010

PATIENT
  Age: 71 Year
  Sex: Male

DRUGS (4)
  1. HYDROCHLOROTHIAZIDE. [Suspect]
     Active Substance: HYDROCHLOROTHIAZIDE
     Dosage: 25 MG, 1X/DAY
     Route: 048
     Dates: start: 20200213, end: 20200611
  2. GLICLAZIDE [Suspect]
     Active Substance: GLICLAZIDE
     Indication: TYPE 2 DIABETES MELLITUS
     Dosage: 0.5 DF, DAILY
     Route: 048
     Dates: end: 20200611
  3. PANTOPRAZOLE [Suspect]
     Active Substance: PANTOPRAZOLE
     Dosage: 40 MG, 1X/DAY
     Route: 048
     Dates: start: 20200124, end: 20200611
  4. ATORVASTATIN CALCIUM. [Suspect]
     Active Substance: ATORVASTATIN CALCIUM
     Indication: ISCHAEMIC STROKE
     Dosage: 40 MG/KG, 1X/DAY
     Route: 048
     Dates: start: 20200124, end: 20200611

REACTIONS (2)
  - Agranulocytosis [Recovered/Resolved]
  - Aplastic anaemia [Not Recovered/Not Resolved]

NARRATIVE: CASE EVENT DATE: 202003
